FAERS Safety Report 8772298 (Version 2)
Quarter: 2012Q4

REPORT INFORMATION
  Report Type: 
  Country: US (occurrence: US)
  Receive Date: 20120906
  Receipt Date: 20121023
  Transmission Date: 20130627
  Serious: No
  Sender: FDA-Public Use
  Company Number: US-BIOGENIDEC-2012BI033045

PATIENT
  Sex: Male

DRUGS (5)
  1. AVONEX [Suspect]
     Indication: MULTIPLE SCLEROSIS
     Route: 030
     Dates: start: 20050401, end: 201208
  2. AVONEX [Suspect]
     Indication: MULTIPLE SCLEROSIS
     Route: 030
     Dates: start: 201208
  3. ALEVE [Concomitant]
     Indication: DRUG THERAPY
  4. ASPIRIN [Concomitant]
     Indication: DRUG THERAPY
  5. AMITRIPTYLINE [Concomitant]
     Indication: INITIAL INSOMNIA

REACTIONS (7)
  - Blindness [Not Recovered/Not Resolved]
  - Gait disturbance [Recovered/Resolved]
  - Urinary incontinence [Recovered/Resolved]
  - Hypercoagulation [Unknown]
  - Eating disorder [Not Recovered/Not Resolved]
  - Initial insomnia [Recovered/Resolved]
  - Insomnia [Not Recovered/Not Resolved]
